FAERS Safety Report 23230298 (Version 1)
Quarter: 2023Q4

REPORT INFORMATION
  Report Type: Report from Study
  Country: GB (occurrence: GB)
  Receive Date: 20231127
  Receipt Date: 20231127
  Transmission Date: 20240110
  Serious: Yes (Other)
  Sender: FDA-Public Use
  Company Number: GB-TAKEDA-2023TUS112270

PATIENT
  Sex: Female

DRUGS (1)
  1. VEDOLIZUMAB [Suspect]
     Active Substance: VEDOLIZUMAB
     Indication: Crohn^s disease
     Dosage: 108 MILLIGRAM
     Route: 058

REACTIONS (5)
  - Thrombosis [Unknown]
  - Limb mass [Unknown]
  - Pain in extremity [Unknown]
  - Sensory disturbance [Unknown]
  - Sciatica [Unknown]
